FAERS Safety Report 8422540-0 (Version None)
Quarter: 2012Q2

REPORT INFORMATION
  Report Type: 
  Country: None (occurrence: None)
  Receive Date: 20120608
  Receipt Date: 20120606
  Transmission Date: 20120825
  Serious: No
  Sender: FDA-Public Use
  Company Number: US-PFIZER INC-2012137333

PATIENT
  Sex: Male
  Weight: 116 kg

DRUGS (5)
  1. CELEBREX [Suspect]
     Dosage: 200 MG, 2X/DAY
     Route: 048
     Dates: start: 20020101, end: 20070601
  2. MELOXICAM [Suspect]
     Indication: ARTHRITIS
     Dosage: 15 MG, DAILY
     Dates: start: 20070601, end: 20070601
  3. CELEBREX [Suspect]
     Indication: ARTHRITIS
     Dosage: 200 MG, DAILY
     Route: 048
     Dates: start: 19920101, end: 20020101
  4. CRESTOR [Suspect]
     Indication: BLOOD CHOLESTEROL INCREASED
     Dosage: 10 MG, DAILY
  5. CRESTOR [Suspect]
     Dosage: 10 MG, 3X/WEEK

REACTIONS (2)
  - DRUG ADMINISTRATION ERROR [None]
  - ARTHRITIS [None]
